FAERS Safety Report 9950762 (Version 1)
Quarter: 2014Q1

REPORT INFORMATION
  Report Type: Report from Study
  Country: US (occurrence: US)
  Receive Date: 20140304
  Receipt Date: 20140304
  Transmission Date: 20141002
  Serious: No
  Sender: FDA-Public Use
  Company Number: US-ABBVIE-13P-163-1064941-00

PATIENT
  Sex: Male
  Weight: 158.9 kg

DRUGS (7)
  1. HUMIRA [Suspect]
     Indication: PSORIATIC ARTHROPATHY
     Dates: end: 201301
  2. HUMIRA [Suspect]
     Indication: PSORIASIS
     Dates: start: 20130318
  3. LISINOPRIL [Concomitant]
     Indication: HYPERTENSION
  4. SIMVASTATIN [Concomitant]
     Indication: BLOOD CHOLESTEROL INCREASED
  5. METHOTREXATE [Concomitant]
     Indication: PSORIATIC ARTHROPATHY
  6. MELOXICAM [Concomitant]
     Indication: PSORIATIC ARTHROPATHY
  7. SHINGLES VACCINE [Concomitant]
     Indication: ANTIVIRAL PROPHYLAXIS

REACTIONS (2)
  - Scar [Not Recovered/Not Resolved]
  - Herpes zoster [Recovered/Resolved]
